FAERS Safety Report 5878093-4 (Version None)
Quarter: 2008Q3

REPORT INFORMATION
  Report Type: 
  Country: None (occurrence: None)
  Receive Date: 20080911
  Receipt Date: 20080829
  Transmission Date: 20090109
  Serious: Yes (Disabling)
  Sender: FDA-Public Use
  Company Number: CA-MERCK-0809CAN00001

PATIENT
  Age: 54 Year
  Sex: Male

DRUGS (13)
  1. ISENTRESS [Suspect]
     Indication: HIV INFECTION
     Route: 048
     Dates: start: 20070620
  2. EFAVIRENZ [Concomitant]
     Indication: HIV INFECTION
     Route: 065
     Dates: start: 20040101
  3. LAMIVUDINE [Concomitant]
     Indication: HIV INFECTION
     Route: 065
     Dates: start: 20040101
  4. LOPINAVIR AND RITONAVIR [Concomitant]
     Indication: HIV INFECTION
     Route: 065
     Dates: start: 20040101
  5. ATAZANAVIR [Concomitant]
     Indication: HIV INFECTION
     Route: 065
     Dates: start: 20040101
  6. ENFUVIRTIDE [Concomitant]
     Indication: HIV INFECTION
     Route: 065
     Dates: start: 20040101, end: 20070619
  7. BUPROPION HYDROCHLORIDE [Concomitant]
     Indication: BIPOLAR DISORDER
     Route: 065
  8. CLONAZEPAM [Concomitant]
     Indication: BIPOLAR DISORDER
     Route: 065
  9. [THERAPY UNSPECIFIED] [Concomitant]
     Indication: BIPOLAR DISORDER
     Route: 065
  10. SERTRALINE HYDROCHLORIDE [Concomitant]
     Indication: BIPOLAR DISORDER
     Route: 065
  11. VALPROIC ACID [Concomitant]
     Indication: BIPOLAR DISORDER
     Route: 065
     Dates: end: 20070601
  12. VALPROIC ACID [Concomitant]
     Route: 065
     Dates: start: 20070601
  13. ZOPICLONE [Concomitant]
     Indication: BIPOLAR DISORDER
     Route: 065

REACTIONS (1)
  - DEPRESSION [None]
